FAERS Safety Report 7678286-X (Version None)
Quarter: 2011Q3

REPORT INFORMATION
  Report Type: 
  Country: None (occurrence: None)
  Receive Date: 20110811
  Receipt Date: 20110802
  Transmission Date: 20111222
  Serious: Yes (Hospitalization)
  Sender: FDA-Public Use
  Company Number: PHHY2011FR38815

PATIENT
  Sex: Female

DRUGS (8)
  1. SPIROCTAN [Concomitant]
     Dosage: 50 MG, QD
  2. ASPIRIN [Concomitant]
     Dosage: 75 MG, QD
  3. CLONAZEPAM [Concomitant]
     Dosage: 6 DRP, UNK
  4. BISOPROLOL FUMARATE [Concomitant]
     Dosage: 5 MG, QD
  5. TASIGNA [Suspect]
     Indication: CHRONIC MYELOID LEUKAEMIA
     Dosage: 800 MG, QD
     Route: 048
     Dates: start: 20110201, end: 20110318
  6. TASIGNA [Suspect]
     Dosage: 400 MG, QD
     Route: 048
     Dates: start: 20110504
  7. TASIGNA [Suspect]
     Dosage: 200 MG, QD
     Route: 048
     Dates: start: 20110426
  8. MAGNE B6 [Concomitant]
     Dosage: 4 DF, UNK

REACTIONS (2)
  - PLATELET COUNT DECREASED [None]
  - PANCYTOPENIA [None]
